FAERS Safety Report 5136425-9 (Version None)
Quarter: 2006Q4

REPORT INFORMATION
  Report Type: 
  Country: None (occurrence: None)
  Receive Date: 20061027
  Receipt Date: 20050915
  Transmission Date: 20070319
  Serious: No
  Sender: FDA-Public Use
  Company Number: US-BRISTOL-MYERS SQUIBB COMPANY-13112412

PATIENT

DRUGS (2)
  1. KENALOG-40 [Suspect]
     Indication: JOINT INJECTION
     Route: 008
  2. BUPIVACAINE [Concomitant]
     Indication: JOINT INJECTION
     Route: 008

REACTIONS (1)
  - INCORRECT ROUTE OF DRUG ADMINISTRATION [None]
